FAERS Safety Report 20991218 (Version 1)
Quarter: 2022Q2

REPORT INFORMATION
  Report Type: Spontaneous
  Country: US (occurrence: US)
  Receive Date: 20220622
  Receipt Date: 20220622
  Transmission Date: 20220721
  Serious: Yes (Death, Hospitalization, Other)
  Sender: FDA-Public Use
  Company Number: US-AMGEN-USASP2022103191

PATIENT

DRUGS (2)
  1. FILGRASTIM [Suspect]
     Active Substance: FILGRASTIM
     Indication: Prophylaxis
     Dosage: UNK
     Route: 065
  2. CYTARABINE [Concomitant]
     Active Substance: CYTARABINE
     Indication: Acute myeloid leukaemia
     Dosage: UNK

REACTIONS (21)
  - Infection [Fatal]
  - Acute myeloid leukaemia [Fatal]
  - Skin bacterial infection [Unknown]
  - Urinary tract infection [Unknown]
  - Colitis [Unknown]
  - Enteritis [Unknown]
  - Neutropenia [Unknown]
  - Pneumonia [Unknown]
  - Fungal infection [Unknown]
  - Sinusitis [Unknown]
  - Bacteraemia [Unknown]
  - Bacterial infection [Unknown]
  - Unevaluable event [Unknown]
  - Febrile neutropenia [Unknown]
  - Adverse event [Unknown]
  - Pulmonary embolism [Unknown]
  - Anti-platelet antibody [Unknown]
  - Respiratory tract infection viral [Unknown]
  - Candida infection [Unknown]
  - Herpes simplex [Unknown]
  - Pyrexia [Unknown]
